FAERS Safety Report 18592030 (Version 1)
Quarter: 2020Q4

REPORT INFORMATION
  Report Type: Report from Study
  Country: BR (occurrence: BR)
  Receive Date: 20201208
  Receipt Date: 20201208
  Transmission Date: 20210114
  Serious: Yes (Other)
  Sender: FDA-Public Use
  Company Number: NVSC2020BR280593

PATIENT
  Age: 71 Year
  Sex: Male
  Weight: 82 kg

DRUGS (11)
  1. COSENTYX [Suspect]
     Active Substance: SECUKINUMAB
     Dosage: QMO (01 FULL PEN)
     Route: 058
     Dates: start: 20200922, end: 202009
  2. POTASSIUM CITRATE. [Concomitant]
     Active Substance: POTASSIUM CITRATE
     Dosage: QD (2 YEARS AGO)
     Route: 048
  3. PANTOPRAZOLE [Concomitant]
     Active Substance: PANTOPRAZOLE
     Indication: PEPTIC ULCER
     Dosage: 1 DF, QD (14 OR 16 YEARS AGO)
     Route: 048
  4. DUO TRAVATAN [Suspect]
     Active Substance: TIMOLOL MALEATE\TRAVOPROST
     Indication: INTRAOCULAR PRESSURE INCREASED
     Dosage: 1 DRP, QD (1 DROP IN EACH EYE AT BEDTIME)
     Route: 047
     Dates: start: 2015
  5. COSENTYX [Suspect]
     Active Substance: SECUKINUMAB
     Indication: SPONDYLITIS
     Dosage: QW (01 FULL PEN)
     Route: 058
     Dates: start: 20200729, end: 20200826
  6. CELEBRA [Concomitant]
     Active Substance: CELECOXIB
     Dosage: 1 DF, QD
     Route: 048
     Dates: end: 20201010
  7. GLAUTIMOL [Concomitant]
     Active Substance: TIMOLOL MALEATE
     Indication: INTRAOCULAR PRESSURE INCREASED
     Dosage: 1 DRP, QHS (IN EACH EYE DURING BEDTIME)
     Route: 047
  8. POTASSIUM CITRATE. [Concomitant]
     Active Substance: POTASSIUM CITRATE
     Indication: RENAL DISORDER
     Dosage: UNK UNK, QD
     Route: 048
     Dates: start: 2012
  9. CELEBRA [Concomitant]
     Active Substance: CELECOXIB
     Indication: ARTHRALGIA
     Dosage: 1 DF, Q12H
     Route: 048
     Dates: start: 202009
  10. ENBREL [Suspect]
     Active Substance: ETANERCEPT
     Indication: PRODUCT USED FOR UNKNOWN INDICATION
     Dosage: UNK
     Route: 065
  11. TRAVOPROSTA [Concomitant]
     Active Substance: TRAVOPROST
     Indication: INTRAOCULAR PRESSURE INCREASED
     Dosage: 1 DRP, QHS ((IN EACH EYE DURING BEDTIME)
     Route: 047

REACTIONS (11)
  - Ankylosing spondylitis [Not Recovered/Not Resolved]
  - Therapeutic product effect decreased [Not Recovered/Not Resolved]
  - Arthralgia [Recovered/Resolved]
  - Oedema peripheral [Recovering/Resolving]
  - Tuberculin test positive [Unknown]
  - Product availability issue [Unknown]
  - Joint swelling [Recovering/Resolving]
  - Arthralgia [Not Recovered/Not Resolved]
  - Product use in unapproved indication [Unknown]
  - Peripheral swelling [Recovering/Resolving]
  - Back pain [Not Recovered/Not Resolved]

NARRATIVE: CASE EVENT DATE: 202008
